FAERS Safety Report 9356576 (Version 1)
Quarter: 2013Q2

REPORT INFORMATION
  Report Type: Spontaneous
  Country: CN (occurrence: CN)
  Receive Date: 20130619
  Receipt Date: 20130619
  Transmission Date: 20140414
  Serious: Yes (Other)
  Sender: FDA-Public Use
  Company Number: PHHY2013CN062313

PATIENT
  Sex: Male
  Weight: 1.4 kg

DRUGS (9)
  1. HYDRALAZINE [Suspect]
     Dosage: 10 MG, QID
     Route: 064
  2. HYDRALAZINE [Suspect]
     Dosage: 25 MG, QID
     Route: 064
  3. PHENTOLAMINE [Concomitant]
     Dosage: 5 MG, UNK
     Route: 064
  4. MAGNESIUM SULFATE [Concomitant]
     Dosage: UNK UKN,  1 GM IN 25 % SOLUTION
     Route: 064
  5. BETAMETHASONE [Concomitant]
     Dosage: 0.1 MG, UNK
     Route: 064
  6. REMIFENTANIL [Concomitant]
     Dosage: 10 UG, UNK
     Route: 064
  7. PROPOFOL [Concomitant]
     Dosage: 30 MG, UNK
     Route: 064
  8. SUXAMETHONIUM CHLORIDE [Concomitant]
     Dosage: 100 MG, UNK
     Route: 064
  9. LABETALOL [Concomitant]
     Dosage: 100 MG, UNK
     Route: 064

REACTIONS (5)
  - Foetal distress syndrome [Unknown]
  - Premature baby [Unknown]
  - Low birth weight baby [Unknown]
  - Apgar score low [Unknown]
  - Foetal exposure during pregnancy [Unknown]
